FAERS Safety Report 21211770 (Version 2)
Quarter: 2022Q4

REPORT INFORMATION
  Report Type: Spontaneous
  Country: US (occurrence: None)
  Receive Date: 20220815
  Receipt Date: 20221207
  Transmission Date: 20230112
  Serious: Yes (Other)
  Sender: FDA-Public Use
  Company Number: US-ROCHE-3158188

PATIENT
  Age: 42 Year
  Sex: Male

DRUGS (2)
  1. HEMLIBRA [Suspect]
     Active Substance: EMICIZUMAB-KXWH
     Indication: Factor VIII deficiency
     Route: 058
     Dates: start: 20220713
  2. HEMLIBRA [Suspect]
     Active Substance: EMICIZUMAB-KXWH
     Dosage: FORM STRENGTH : 105MG/0.7ML
     Route: 058
     Dates: start: 20220510, end: 20221118

REACTIONS (2)
  - Haemorrhage [Unknown]
  - Muscle haemorrhage [Unknown]
